FAERS Safety Report 10327839 (Version 2)
Quarter: 2014Q3

REPORT INFORMATION
  Report Type: Spontaneous
  Country: GB (occurrence: GB)
  Receive Date: 20140721
  Receipt Date: 20140721
  Transmission Date: 20150326
  Serious: Yes (Other)
  Sender: FDA-Public Use
  Company Number: GB-RANBAXY-2014R1-77204

PATIENT
  Age: 34 Year
  Sex: Female

DRUGS (1)
  1. FORTWIN [Suspect]
     Active Substance: PENTAZOCINE
     Indication: PAIN
     Dosage: UNK
     Route: 030

REACTIONS (9)
  - Skin necrosis [Unknown]
  - Skin fibrosis [None]
  - Self-medication [None]
  - Scar [Unknown]
  - Skin ulcer [None]
  - Fat necrosis [None]
  - Skin mass [None]
  - Mood swings [Unknown]
  - Hypertrophic scar [None]
